FAERS Safety Report 6893378-0 (Version None)
Quarter: 2010Q3

REPORT INFORMATION
  Report Type: 
  Country: None (occurrence: None)
  Receive Date: 20100731
  Receipt Date: 20090825
  Transmission Date: 20110219
  Serious: No
  Sender: FDA-Public Use
  Company Number: US-PFIZER INC-2009225430

PATIENT
  Sex: Female
  Weight: 70.295 kg

DRUGS (3)
  1. NEURONTIN [Suspect]
     Indication: NEUROPATHY PERIPHERAL
     Dosage: 200 MG/DAY
  2. LEVOXYL [Concomitant]
     Dosage: UNK
  3. ZOLPIDEM [Concomitant]
     Dosage: UNK

REACTIONS (9)
  - AGITATION [None]
  - DRUG INEFFECTIVE [None]
  - EMOTIONAL DISORDER [None]
  - LIMB DISCOMFORT [None]
  - MOBILITY DECREASED [None]
  - NEURALGIA [None]
  - PAIN [None]
  - PARAESTHESIA ORAL [None]
  - VULVOVAGINAL PAIN [None]
